FAERS Safety Report 21322918 (Version 1)
Quarter: 2022Q3

REPORT INFORMATION
  Report Type: Report from Study
  Country: BR (occurrence: BR)
  Receive Date: 20220912
  Receipt Date: 20220912
  Transmission Date: 20221027
  Serious: Yes (Other)
  Sender: FDA-Public Use
  Company Number: BR-ABBVIE-22K-020-4529571-00

PATIENT
  Age: 51 Year
  Sex: Female
  Weight: 104 kg

DRUGS (1)
  1. RINVOQ [Suspect]
     Active Substance: UPADACITINIB
     Indication: Rheumatoid arthritis
     Route: 048

REACTIONS (3)
  - Systemic lupus erythematosus [Not Recovered/Not Resolved]
  - Skin exfoliation [Recovering/Resolving]
  - Stress [Unknown]

NARRATIVE: CASE EVENT DATE: 20220701
